FAERS Safety Report 23827656 (Version 2)
Quarter: 2024Q4

REPORT INFORMATION
  Report Type: Spontaneous
  Country: CA (occurrence: CA)
  Receive Date: 20240507
  Receipt Date: 20241220
  Transmission Date: 20250115
  Serious: Yes (Hospitalization)
  Sender: BAUSCH AND LOMB
  Company Number: CA-BAUSCH-BL-2024-007179

PATIENT
  Age: 59 Year
  Sex: Female

DRUGS (14)
  1. DEXAMETHASONE [Suspect]
     Active Substance: DEXAMETHASONE
     Indication: Cancer pain
     Route: 065
  2. DIAZEPAM [Suspect]
     Active Substance: DIAZEPAM
     Indication: Product used for unknown indication
     Route: 065
  3. GABAPENTIN [Suspect]
     Active Substance: GABAPENTIN
     Indication: Cancer pain
     Route: 065
  4. GABAPENTIN [Suspect]
     Active Substance: GABAPENTIN
     Indication: Product used for unknown indication
     Route: 065
  5. METHADONE HYDROCHLORIDE [Suspect]
     Active Substance: METHADONE HYDROCHLORIDE
     Indication: Cancer pain
     Route: 065
  6. METHADONE HYDROCHLORIDE [Suspect]
     Active Substance: METHADONE HYDROCHLORIDE
     Dosage: 5 OR 10 MG
     Route: 065
  7. METHADONE HYDROCHLORIDE [Suspect]
     Active Substance: METHADONE HYDROCHLORIDE
     Route: 065
  8. METHADONE HYDROCHLORIDE [Suspect]
     Active Substance: METHADONE HYDROCHLORIDE
     Dosage: METHADONE, 2 ADMINISTRATION
     Route: 065
  9. METHADONE HYDROCHLORIDE [Suspect]
     Active Substance: METHADONE HYDROCHLORIDE
     Dosage: METHADONE.
     Route: 065
  10. MORPHINE SULFATE\TACRINE HYDROCHLORIDE [Suspect]
     Active Substance: MORPHINE SULFATE\TACRINE HYDROCHLORIDE
     Indication: Cancer pain
     Route: 065
  11. MAGALDRATE [Suspect]
     Active Substance: MAGALDRATE
     Indication: Cancer pain
     Dosage: SUSPENSION ORAL
     Route: 065
  12. OXYPHENONIUM BROMIDE [Suspect]
     Active Substance: OXYPHENONIUM BROMIDE
     Indication: Cancer pain
     Route: 065
  13. TACRINE HYDROCHLORIDE [Suspect]
     Active Substance: TACRINE HYDROCHLORIDE
     Indication: Cancer pain
     Route: 065
  14. MORPHINE SULFATE [Suspect]
     Active Substance: MORPHINE SULFATE
     Indication: Cancer pain
     Route: 065

REACTIONS (3)
  - Drug ineffective [Unknown]
  - Off label use [Unknown]
  - No adverse event [Unknown]
